FAERS Safety Report 17814494 (Version 1)
Quarter: 2020Q2

REPORT INFORMATION
  Report Type: Spontaneous
  Country: CN (occurrence: CN)
  Receive Date: 20200522
  Receipt Date: 20200522
  Transmission Date: 20200714
  Serious: Yes (Other)
  Sender: FDA-Public Use
  Company Number: CN-ROCHE-2603867

PATIENT
  Age: 68 Year
  Sex: Male

DRUGS (9)
  1. VINDESINE [Concomitant]
     Active Substance: VINDESINE
     Indication: MANTLE CELL LYMPHOMA
     Route: 065
  2. MABTHERA [Suspect]
     Active Substance: RITUXIMAB
     Indication: MANTLE CELL LYMPHOMA
     Dosage: 6 TIMES
     Route: 065
  3. VINDESINE [Concomitant]
     Active Substance: VINDESINE
     Route: 065
  4. EPIRUBICIN [Concomitant]
     Active Substance: EPIRUBICIN
     Indication: MANTLE CELL LYMPHOMA
     Route: 065
  5. IBRUTINIB [Concomitant]
     Active Substance: IBRUTINIB
     Indication: MANTLE CELL LYMPHOMA
     Dosage: PER DAY
     Route: 048
  6. CYCLOPHOSPHAMIDE. [Concomitant]
     Active Substance: CYCLOPHOSPHAMIDE
     Indication: MANTLE CELL LYMPHOMA
     Route: 065
  7. CYCLOPHOSPHAMIDE. [Concomitant]
     Active Substance: CYCLOPHOSPHAMIDE
     Route: 065
  8. PREDNISONE. [Concomitant]
     Active Substance: PREDNISONE
     Indication: MANTLE CELL LYMPHOMA
     Route: 065
  9. LENALIDOMIDE [Concomitant]
     Active Substance: LENALIDOMIDE
     Indication: MANTLE CELL LYMPHOMA

REACTIONS (9)
  - Renal impairment [Unknown]
  - Off label use [Unknown]
  - Agranulocytosis [Unknown]
  - Asthenia [Unknown]
  - Abdominal pain [Unknown]
  - Infection [Unknown]
  - Platelet count decreased [Unknown]
  - Blood pressure increased [Unknown]
  - Intentional product use issue [Unknown]
